FAERS Safety Report 5414349-7 (Version None)
Quarter: 2007Q3

REPORT INFORMATION
  Report Type: 
  Country: None (occurrence: None)
  Receive Date: 20070814
  Receipt Date: 20070802
  Transmission Date: 20080115
  Serious: Yes (Other)
  Sender: FDA-Public Use
  Company Number: DE-PFIZER INC-2007065853

PATIENT
  Age: 67 Year
  Sex: Female

DRUGS (3)
  1. CHAMPIX [Suspect]
     Route: 048
     Dates: start: 20070518, end: 20070710
  2. NOVONORM [Concomitant]
  3. METFORMIN HCL [Concomitant]

REACTIONS (7)
  - BLOOD GLUCOSE DECREASED [None]
  - BLOOD GLUCOSE INCREASED [None]
  - DEPRESSED MOOD [None]
  - DISTURBANCE IN ATTENTION [None]
  - DIZZINESS [None]
  - FALL [None]
  - MEMORY IMPAIRMENT [None]
